FAERS Safety Report 20579438 (Version 4)
Quarter: 2022Q2

REPORT INFORMATION
  Report Type: Spontaneous
  Country: US (occurrence: US)
  Receive Date: 20220310
  Receipt Date: 20220526
  Transmission Date: 20220720
  Serious: Yes (Other)
  Sender: FDA-Public Use
  Company Number: US-PFIZER INC-202200376883

PATIENT
  Age: 74 Year
  Sex: Female

DRUGS (1)
  1. XELJANZ XR [Suspect]
     Active Substance: TOFACITINIB CITRATE
     Dosage: UNK
     Dates: start: 20220224

REACTIONS (8)
  - Foreign body in throat [Unknown]
  - Hiccups [Unknown]
  - Eructation [Unknown]
  - Flatulence [Unknown]
  - Nausea [Unknown]
  - Abdominal distension [Unknown]
  - Regurgitation [Unknown]
  - Eating disorder [Not Recovered/Not Resolved]

NARRATIVE: CASE EVENT DATE: 20220101
